FAERS Safety Report 17206101 (Version 1)
Quarter: 2020Q1

REPORT INFORMATION
  Report Type: Spontaneous
  Country: US (occurrence: US)
  Receive Date: 20191226
  Receipt Date: 20191226
  Transmission Date: 20200409
  Serious: Yes (Hospitalization)
  Sender: FDA-Public Use
  Company Number: None

PATIENT
  Age: 56 Year
  Sex: Male

DRUGS (7)
  1. AMBRISENTAN [Suspect]
     Active Substance: AMBRISENTAN
     Indication: PULMONARY ARTERIAL HYPERTENSION
     Route: 048
     Dates: start: 20191018
  2. LASIX TAB 40MG [Concomitant]
     Dates: start: 20191115
  3. PROTONIX INJ 40MG [Concomitant]
     Dates: start: 20191115
  4. ADCIRCA [Concomitant]
     Active Substance: TADALAFIL
     Dates: start: 20171208
  5. SPIRONOLACT TAB 25MG [Concomitant]
     Dates: start: 20191115
  6. TADALAFIL. [Suspect]
     Active Substance: TADALAFIL
     Indication: PULMONARY ARTERIAL HYPERTENSION
     Route: 048
     Dates: start: 20191126
  7. LETARIS TAB 10MG [Concomitant]
     Dates: start: 20191115

REACTIONS (2)
  - Near death experience [None]
  - Hospitalisation [None]
